FAERS Safety Report 8037494-9 (Version None)
Quarter: 2012Q1

REPORT INFORMATION
  Report Type: 
  Country: None (occurrence: None)
  Receive Date: 20120111
  Receipt Date: 20120103
  Transmission Date: 20120608
  Serious: Yes (Hospitalization)
  Sender: FDA-Public Use
  Company Number: FR-PFIZER INC-2012005922

PATIENT
  Age: 75 Year
  Sex: Female

DRUGS (6)
  1. CORDARONE [Suspect]
     Indication: ATRIAL FIBRILLATION
     Dosage: UNK
     Route: 048
     Dates: end: 20110324
  2. BEFIZAL [Concomitant]
     Dosage: UNK
     Dates: end: 20110324
  3. PANTOPRAZOLE [Concomitant]
     Dosage: UNK
  4. COUMADIN [Concomitant]
     Dosage: UNK
  5. DIAMICRON [Interacting]
     Indication: TYPE 2 DIABETES MELLITUS
     Dosage: UNK
     Route: 048
     Dates: end: 20110324
  6. TRANDOLAPRIL [Concomitant]
     Dosage: UNK

REACTIONS (3)
  - DRUG INTERACTION [None]
  - HYPOGLYCAEMIA [None]
  - MALAISE [None]
